FAERS Safety Report 6638291-9 (Version None)
Quarter: 2010Q1

REPORT INFORMATION
  Report Type: 
  Country: None (occurrence: None)
  Receive Date: 20100301
  Receipt Date: 20090414
  Transmission Date: 20100710
  Serious: Yes (Death)
  Sender: FDA-Public Use
  Company Number: RB-14432-2009

PATIENT
  Age: 27 Year
  Sex: Male

DRUGS (3)
  1. HEROIN [Suspect]
     Dates: end: 20090405
  2. BENZODIAZEPINE DERIVATIVES [Suspect]
     Indication: DRUG USE FOR UNKNOWN INDICATION
     Dates: end: 20090405
  3. SUBOXONE [Suspect]
     Indication: DRUG USE FOR UNKNOWN INDICATION
     Dosage: SUBLINGUAL
     Route: 060

REACTIONS (1)
  - OVERDOSE [None]
